FAERS Safety Report 20346781 (Version 1)
Quarter: 2022Q1

REPORT INFORMATION
  Report Type: Spontaneous
  Country: US (occurrence: None)
  Receive Date: 20220116
  Receipt Date: 20220116
  Transmission Date: 20220423
  Serious: No
  Sender: FDA-Public Use
  Company Number: None

PATIENT
  Age: 67 Year
  Sex: Female
  Weight: 58.5 kg

DRUGS (1)
  1. REPATHA [Suspect]
     Active Substance: EVOLOCUMAB
     Indication: Blood cholesterol increased
     Dosage: OTHER FREQUENCY : BI WEEKLY;?
     Route: 030
     Dates: start: 20210501, end: 20211227

REACTIONS (7)
  - Rhinorrhoea [None]
  - Weight increased [None]
  - Pain in extremity [None]
  - Arthralgia [None]
  - Pain in extremity [None]
  - Burning sensation [None]
  - Gait disturbance [None]

NARRATIVE: CASE EVENT DATE: 20210701
